FAERS Safety Report 5530861-4 (Version None)
Quarter: 2007Q4

REPORT INFORMATION
  Report Type: 
  Country: None (occurrence: None)
  Receive Date: 20071130
  Receipt Date: 20071129
  Transmission Date: 20080405
  Serious: Yes (Death)
  Sender: FDA-Public Use
  Company Number: MX-ASTRAZENECA-2007UW27269

PATIENT
  Age: 82 Year
  Sex: Male
  Weight: 60 kg

DRUGS (5)
  1. NEXIUM [Suspect]
     Indication: GASTROOESOPHAGEAL REFLUX DISEASE
     Route: 048
     Dates: start: 20070901, end: 20071001
  2. NEXIUM [Suspect]
     Indication: GASTRIC ULCER
     Route: 048
     Dates: start: 20070901, end: 20071001
  3. NEXIUM [Suspect]
     Route: 048
     Dates: start: 20071001, end: 20071101
  4. NEXIUM [Suspect]
     Route: 048
     Dates: start: 20071001, end: 20071101
  5. OMEPRAZOLE [Concomitant]
     Route: 048

REACTIONS (2)
  - DEATH [None]
  - GASTRIC XANTHOMA [None]
